FAERS Safety Report 25804815 (Version 1)
Quarter: 2025Q3

REPORT INFORMATION
  Report Type: Spontaneous
  Country: CN (occurrence: CN)
  Receive Date: 20250915
  Receipt Date: 20250915
  Transmission Date: 20251020
  Serious: Yes (Hospitalization, Other)
  Sender: ASTELLAS
  Company Number: CN-ASTELLAS-2025-AER-050254

PATIENT
  Age: 82 Year
  Sex: Male

DRUGS (6)
  1. ISAVUCONAZOLE [Suspect]
     Active Substance: ISAVUCONAZOLE
     Indication: Bronchopulmonary aspergillosis
     Dosage: LOADING DOSE OF 200 MG EVERY 8 H FOR 48 H (6 DOSES)
     Route: 042
     Dates: start: 20241015, end: 20241017
  2. ISAVUCONAZOLE [Suspect]
     Active Substance: ISAVUCONAZOLE
     Dosage: MAINTENANCE DOSE OF 200 MG ONCE DAILY
     Route: 042
     Dates: start: 20241017, end: 20241118
  3. ISAVUCONAZOLE [Suspect]
     Active Substance: ISAVUCONAZOLE
     Dosage: REDUCED TO 100 MG DAILY
     Route: 042
     Dates: start: 20241118
  4. AMPHOTERICIN B [Concomitant]
     Active Substance: AMPHOTERICIN B
     Indication: Bronchopulmonary aspergillosis
     Route: 065
     Dates: start: 20241017, end: 2024
  5. MEROPENEM [Concomitant]
     Active Substance: MEROPENEM
     Indication: Pneumonia
     Route: 065
     Dates: start: 202410, end: 20241016
  6. VANCOMYCIN [Concomitant]
     Active Substance: VANCOMYCIN
     Indication: Pneumonia
     Route: 065
     Dates: start: 202410, end: 20241011

REACTIONS (5)
  - Toxicity to various agents [Recovering/Resolving]
  - Platelet count decreased [Recovering/Resolving]
  - Haemoglobin decreased [Not Recovered/Not Resolved]
  - Hepatocellular injury [Recovered/Resolved]
  - Off label use [Unknown]

NARRATIVE: CASE EVENT DATE: 20241030
